FAERS Safety Report 9401121 (Version 2)
Quarter: 2013Q3

REPORT INFORMATION
  Report Type: Report from Study
  Country: US (occurrence: US)
  Receive Date: 20130715
  Receipt Date: 20130828
  Transmission Date: 20140515
  Serious: Yes (Death)
  Sender: FDA-Public Use
  Company Number: 2013SP001959

PATIENT
  Age: 40 Year
  Sex: Male
  Weight: 158 kg

DRUGS (11)
  1. SM-13496 [Suspect]
     Indication: SCHIZOPHRENIA, PARANOID TYPE
     Route: 048
     Dates: start: 20130607
  2. SM-13496 [Suspect]
     Indication: SCHIZOPHRENIA, PARANOID TYPE
     Route: 048
  3. BENZOTROPINE [Concomitant]
     Indication: PRODUCT USED FOR UNKNOWN INDICATION
     Route: 048
  4. MIRTAZAPINE [Concomitant]
     Indication: PRODUCT USED FOR UNKNOWN INDICATION
     Route: 048
  5. LITHIUM CARBONATE [Concomitant]
     Indication: PRODUCT USED FOR UNKNOWN INDICATION
     Route: 048
  6. HYDROXIZINE [Concomitant]
     Indication: PRODUCT USED FOR UNKNOWN INDICATION
     Route: 048
  7. FISH OIL [Concomitant]
     Route: 048
  8. RISPERDAL [Concomitant]
     Route: 048
  9. LORAZEPAM [Concomitant]
     Route: 048
  10. COLACE [Concomitant]
     Route: 048
  11. AUGMENTIN /00756801/ [Concomitant]
     Route: 048

REACTIONS (1)
  - Sudden death [Fatal]
